FAERS Safety Report 10504331 (Version 2)
Quarter: 2015Q1

REPORT INFORMATION
  Report Type: Spontaneous
  Country: BE (occurrence: BE)
  Receive Date: 20141008
  Receipt Date: 20150113
  Transmission Date: 20150720
  Serious: Yes (Other)
  Sender: FDA-Public Use
  Company Number: BE-AMGEN-BELSP2014076032

PATIENT
  Age: 91 Year
  Sex: Female
  Weight: 62 kg

DRUGS (11)
  1. PROLIA [Suspect]
     Active Substance: DENOSUMAB
     Indication: OSTEOPOROSIS
     Dosage: UNK
     Route: 065
     Dates: start: 20120628, end: 20140612
  2. STEOVIT D3 [Concomitant]
     Indication: OSTEOPOROSIS
     Dosage: 1000/800 UNIT,
  3. TAVONIN [Concomitant]
     Indication: MEMORY IMPAIRMENT
     Dosage: 40 UNK, QD
     Route: 048
  4. TRAMADOL [Concomitant]
     Active Substance: TRAMADOL
     Indication: PAIN
     Dosage: 25 UNK, UNK
     Route: 048
  5. DORMONOCT [Concomitant]
     Active Substance: LOPRAZOLAM
     Indication: SLEEP DISORDER
     Dosage: 1 UNK, QD
     Route: 048
  6. L-THYROXINE                        /00068001/ [Concomitant]
     Indication: HYPOTHYROIDISM
     Dosage: 100 UNK, QD
     Route: 048
  7. DAFLON                             /00426001/ [Concomitant]
     Active Substance: DIOSMIN
     Indication: PERIPHERAL VENOUS DISEASE
     Dosage: 500 UNK, BID
     Route: 048
  8. SYMBICORT [Concomitant]
     Active Substance: BUDESONIDE\FORMOTEROL FUMARATE DIHYDRATE
     Indication: CHRONIC OBSTRUCTIVE PULMONARY DISEASE
     Dosage: UNK UNK, BID
  9. PANTOMED                           /00178901/ [Concomitant]
     Indication: OESOPHAGITIS
     Dosage: 20 UNK, QD
     Route: 048
  10. PARACETAMOL [Concomitant]
     Active Substance: ACETAMINOPHEN
     Indication: PAIN
     Dosage: 1000 UNIT, UNK
     Route: 048
  11. MAGNESIUM [Concomitant]
     Active Substance: MAGNESIUM
     Indication: MUSCLE SPASMS
     Dosage: 380 UNK, QD
     Route: 048

REACTIONS (1)
  - Pemphigoid [Not Recovered/Not Resolved]

NARRATIVE: CASE EVENT DATE: 20130715
